FAERS Safety Report 8839700 (Version 3)
Quarter: 2013Q1

REPORT INFORMATION
  Report Type: Report from Study
  Country: JP (occurrence: JP)
  Receive Date: 20121015
  Receipt Date: 20130208
  Transmission Date: 20140127
  Serious: Yes (Disabling, Other)
  Sender: FDA-Public Use
  Company Number: JP-JNJFOC-20120206344

PATIENT
  Age: 61 Year
  Sex: Male
  Weight: 78 kg

DRUGS (55)
  1. DUROTEP MT [Suspect]
     Indication: PAIN
     Route: 062
     Dates: start: 20110819
  2. DUROTEP MT [Suspect]
     Indication: PAIN
     Route: 062
     Dates: start: 20110804, end: 20110819
  3. DUROTEP MT [Suspect]
     Indication: PAIN
     Route: 062
     Dates: start: 20120412, end: 20120602
  4. LYRICA [Suspect]
     Indication: PAIN
     Route: 048
     Dates: start: 20120202
  5. LYRICA [Suspect]
     Indication: PAIN
     Route: 048
     Dates: end: 20120201
  6. LANDSEN [Concomitant]
     Indication: PAIN
     Route: 048
  7. MYONAL [Concomitant]
     Indication: PAIN
     Route: 048
  8. SELBEX [Concomitant]
     Indication: PROPHYLAXIS
     Route: 048
     Dates: end: 20110824
  9. MAGLAX [Concomitant]
     Indication: CONSTIPATION
     Route: 048
  10. MAGLAX [Concomitant]
     Indication: PROPHYLAXIS
     Route: 048
  11. PARIET [Concomitant]
     Indication: GASTROOESOPHAGEAL REFLUX DISEASE
     Route: 048
  12. MOBIC [Concomitant]
     Indication: PAIN
     Route: 048
  13. MOHRUS TAPEL [Concomitant]
     Indication: PAIN
     Route: 062
  14. NOVAMIN [Concomitant]
     Indication: PROPHYLAXIS
     Route: 048
     Dates: start: 20110804, end: 20110809
  15. ALOSENN [Concomitant]
     Indication: CONSTIPATION
     Route: 048
     Dates: start: 20110808, end: 20110810
  16. ALOSENN [Concomitant]
     Indication: CONSTIPATION
     Route: 048
     Dates: start: 20110822, end: 20110824
  17. ALOSENN [Concomitant]
     Indication: CONSTIPATION
     Route: 048
     Dates: start: 20110811, end: 20110821
  18. ALL OTHER THERAPEUTIC PRODUCTS [Concomitant]
     Route: 061
     Dates: start: 20110822
  19. ALL OTHER THERAPEUTIC PRODUCTS [Concomitant]
     Indication: ABDOMINAL DISCOMFORT
     Route: 048
     Dates: start: 20110825, end: 20110907
  20. LAXOBERON [Concomitant]
     Indication: CONSTIPATION
     Dosage: AS NEEDED
     Route: 048
     Dates: start: 20110825
  21. SELBEX [Concomitant]
     Indication: PROPHYLAXIS
     Route: 048
     Dates: start: 20110908
  22. ACTOS [Concomitant]
     Indication: DIABETES MELLITUS
     Route: 048
     Dates: end: 20120416
  23. ALL OTHER THERAPEUTIC PRODUCTS [Concomitant]
     Indication: HYPERTENSION
     Route: 048
     Dates: end: 20120220
  24. AMARYL [Concomitant]
     Indication: DIABETES MELLITUS
     Route: 048
     Dates: end: 20111228
  25. AMARYL [Concomitant]
     Indication: DIABETES MELLITUS
     Route: 048
     Dates: start: 20120416
  26. SIMVASTATIN [Concomitant]
     Indication: HYPERCHOLESTEROLAEMIA
     Route: 048
  27. KINEDAK [Concomitant]
     Indication: DIABETIC NEUROPATHY
     Route: 048
  28. BASEN [Concomitant]
     Indication: DIABETES MELLITUS
     Route: 048
     Dates: end: 20120220
  29. METGLUCO [Concomitant]
     Indication: DIABETES MELLITUS
     Route: 048
  30. LANTUS [Concomitant]
     Indication: DIABETES MELLITUS
     Route: 058
     Dates: start: 20110831, end: 20111006
  31. SOLU MEDROL [Concomitant]
     Route: 065
     Dates: start: 20111002, end: 20111003
  32. SOLU MEDROL [Concomitant]
     Route: 065
     Dates: start: 20110930, end: 20111001
  33. SOLU MEDROL [Concomitant]
     Route: 065
     Dates: start: 20111004, end: 20111005
  34. PREDNISOLONE [Concomitant]
     Route: 048
     Dates: start: 20111005, end: 20111006
  35. PREDNISOLONE [Concomitant]
     Route: 048
     Dates: start: 20111007, end: 20111008
  36. DECADRON [Concomitant]
     Route: 001
     Dates: start: 20111011, end: 20111011
  37. NEUROTROPIN [Concomitant]
     Route: 058
  38. METHYCOBAL [Concomitant]
     Indication: PAIN
     Route: 065
  39. ROPION [Concomitant]
     Indication: PAIN
     Route: 065
     Dates: start: 20110804, end: 20110831
  40. MEPIVACAINE HYDROCHLORIDE [Concomitant]
     Indication: PAIN
     Route: 065
  41. MEPIVACAINE HYDROCHLORIDE [Concomitant]
     Indication: NERVE BLOCK
     Route: 065
  42. ALL OTHER THERAPEUTIC PRODUCTS [Concomitant]
     Indication: LOCAL ANAESTHESIA
     Route: 065
  43. ALL OTHER THERAPEUTIC PRODUCTS [Concomitant]
     Indication: PAIN
     Route: 065
  44. XYLOCAINE [Concomitant]
     Indication: LOCAL ANAESTHESIA
     Route: 065
  45. XYLOCAINE [Concomitant]
     Indication: PAIN
     Route: 065
  46. HUMALOG [Concomitant]
     Indication: DIABETES MELLITUS
     Dosage: 12-14 IU
     Route: 058
     Dates: start: 20110930, end: 20111007
  47. HUMALOG [Concomitant]
     Indication: DIABETES MELLITUS
     Route: 058
     Dates: start: 20120730
  48. CODEINE PHOSPHATE [Concomitant]
     Indication: PRODUCT USED FOR UNKNOWN INDICATION
     Route: 065
  49. NULOTAN [Concomitant]
     Indication: HYPERTENSION
     Route: 048
     Dates: start: 20120220, end: 20120319
  50. GLUBES [Concomitant]
     Indication: DIABETES MELLITUS
     Route: 048
     Dates: start: 20120220, end: 20120416
  51. BLOPRESS [Concomitant]
     Indication: HYPERTENSION
     Route: 048
     Dates: start: 20120319, end: 20120514
  52. LUPRAC [Concomitant]
     Indication: OEDEMA PERIPHERAL
     Route: 048
     Dates: start: 20120319, end: 20120416
  53. GLACTIV [Concomitant]
     Indication: DIABETES MELLITUS
     Route: 048
     Dates: start: 20120416
  54. TOKISYAKUYAKUSAN [Concomitant]
     Route: 048
     Dates: start: 20120730
  55. SHAKUYAKUKANZOUTOU [Concomitant]
     Route: 048
     Dates: start: 20120802

REACTIONS (14)
  - Sudden hearing loss [Recovered/Resolved with Sequelae]
  - Diabetes mellitus [Recovering/Resolving]
  - Dizziness [Not Recovered/Not Resolved]
  - Application site pruritus [Recovering/Resolving]
  - Application site erythema [Recovering/Resolving]
  - Abdominal discomfort [Recovered/Resolved]
  - Dysuria [Recovering/Resolving]
  - Hyperhidrosis [Not Recovered/Not Resolved]
  - Dizziness [Not Recovered/Not Resolved]
  - Drug ineffective [Unknown]
  - Wrong technique in drug usage process [Unknown]
  - Oedema peripheral [Not Recovered/Not Resolved]
  - Malaise [Not Recovered/Not Resolved]
  - Muscle spasms [Recovering/Resolving]
